FAERS Safety Report 12528700 (Version 3)
Quarter: 2016Q3

REPORT INFORMATION
  Report Type: Spontaneous
  Country: US (occurrence: US)
  Receive Date: 20160705
  Receipt Date: 20160725
  Transmission Date: 20161109
  Serious: Yes (Death)
  Sender: FDA-Public Use
  Company Number: US-009507513-1607USA000046

PATIENT
  Sex: Male
  Weight: 76.5 kg

DRUGS (7)
  1. SULFAMETHOXAZOLE (+) TRIMETHOPRIM [Concomitant]
     Active Substance: SULFAMETHOXAZOLE\TRIMETHOPRIM
  2. KEYTRUDA [Suspect]
     Active Substance: PEMBROLIZUMAB
     Indication: METASTATIC MALIGNANT MELANOMA
     Dosage: STRENGTH 100 MG/4 ML, 170 MG, Q3W
     Route: 041
     Dates: start: 20160223, end: 20160223
  3. METOPROLOL. [Concomitant]
     Active Substance: METOPROLOL
  4. OMEPRAZOLE. [Concomitant]
     Active Substance: OMEPRAZOLE
  5. LOSARTAN. [Concomitant]
     Active Substance: LOSARTAN
  6. KEYTRUDA [Suspect]
     Active Substance: PEMBROLIZUMAB
     Dosage: STRENGTH 100 MG/4 ML, 170 MG, Q3W
     Route: 041
     Dates: start: 20160316, end: 20160316
  7. ASPIRIN. [Concomitant]
     Active Substance: ASPIRIN

REACTIONS (5)
  - Dysarthria [Fatal]
  - Muscle necrosis [Fatal]
  - Eyelid disorder [Fatal]
  - Myositis [Fatal]
  - Gait disturbance [Fatal]

NARRATIVE: CASE EVENT DATE: 20160316
